FAERS Safety Report 20089971 (Version 1)
Quarter: 2021Q4

REPORT INFORMATION
  Report Type: Spontaneous
  Country: US (occurrence: None)
  Receive Date: 20211118
  Receipt Date: 20211118
  Transmission Date: 20220303
  Serious: Yes (Hospitalization)
  Sender: FDA-Public Use
  Company Number: None

PATIENT
  Sex: Male

DRUGS (8)
  1. IMATINIB [Suspect]
     Active Substance: IMATINIB
     Indication: Acute lymphocytic leukaemia
     Dosage: OTHER FREQUENCY : 1 TABLET DAILY;?
     Route: 048
     Dates: start: 20210420
  2. CALTRATE+D TAB 600-800 [Concomitant]
  3. IMATINIB MESYLATE [Concomitant]
     Active Substance: IMATINIB MESYLATE
  4. JAKAFI [Concomitant]
     Active Substance: RUXOLITINIB
  5. JAKAFI TAB 5MG [Concomitant]
  6. PREDNISONE [Concomitant]
     Active Substance: PREDNISONE
  7. TENOFOVIR [Concomitant]
     Active Substance: TENOFOVIR
  8. TENOFOVIR DISOPROXIL FUMARATE [Concomitant]
     Active Substance: TENOFOVIR DISOPROXIL FUMARATE

REACTIONS (3)
  - Surgery [None]
  - Abdominal pain [None]
  - Sleep disorder [None]
